FAERS Safety Report 8270423-1 (Version None)
Quarter: 2012Q2

REPORT INFORMATION
  Report Type: 
  Country: None (occurrence: None)
  Receive Date: 20120410
  Receipt Date: 20120405
  Transmission Date: 20120825
  Serious: Yes (Other)
  Sender: FDA-Public Use
  Company Number: PHHY2011CA41887

PATIENT
  Sex: Female

DRUGS (2)
  1. ZOLEDRONOC ACID [Suspect]
     Indication: OSTEOPOROSIS
     Dosage: UNK
     Route: 042
     Dates: start: 20100406
  2. ZOLEDRONOC ACID [Suspect]
     Dosage: UNK
     Route: 042
     Dates: start: 20110525

REACTIONS (7)
  - MYASTHENIA GRAVIS [None]
  - MALAISE [None]
  - DYSPHAGIA [None]
  - VISION BLURRED [None]
  - COMMUNICATION DISORDER [None]
  - GAIT DISTURBANCE [None]
  - MUSCLE DISORDER [None]
